FAERS Safety Report 5360929-7 (Version None)
Quarter: 2007Q2

REPORT INFORMATION
  Report Type: 
  Country: None (occurrence: None)
  Receive Date: 20070618
  Receipt Date: 20070611
  Transmission Date: 20071010
  Serious: Yes (Life-Threatening)
  Sender: FDA-Public Use
  Company Number: JP-PFIZER INC-2007017643

PATIENT
  Sex: Female

DRUGS (3)
  1. ATARAX [Suspect]
     Dosage: DAILY DOSE:25MG
     Route: 030
     Dates: start: 20070303, end: 20070303
  2. ATROPINE SULFATE [Concomitant]
     Route: 030
     Dates: start: 20070303, end: 20070303
  3. HORIZON [Concomitant]
     Route: 042

REACTIONS (1)
  - ANAPHYLACTOID REACTION [None]
